FAERS Safety Report 6832703-3 (Version None)
Quarter: 2010Q3

REPORT INFORMATION
  Report Type: 
  Country: None (occurrence: None)
  Receive Date: 20100712
  Receipt Date: 20070723
  Transmission Date: 20110219
  Serious: No
  Sender: FDA-Public Use
  Company Number: US-PFIZER INC-2007021135

PATIENT
  Sex: Female
  Weight: 55.79 kg

DRUGS (3)
  1. CHANTIX [Suspect]
     Indication: SMOKING CESSATION THERAPY
     Dates: start: 20070309
  2. VITAMIN B-12 [Concomitant]
  3. PREMPRO [Concomitant]

REACTIONS (2)
  - MIDDLE INSOMNIA [None]
  - NIGHT SWEATS [None]
